FAERS Safety Report 5332853-7 (Version None)
Quarter: 2007Q2

REPORT INFORMATION
  Report Type: 
  Country: None (occurrence: None)
  Receive Date: 20070521
  Receipt Date: 20070504
  Transmission Date: 20071010
  Serious: Yes (Death)
  Sender: FDA-Public Use
  Company Number: DSA_29629_2007

PATIENT
  Sex: Female

DRUGS (3)
  1. TAVOR /00273201/ (TAVOR) [Suspect]
     Dosage: 1.5 MG QD ORAL
     Route: 048
     Dates: start: 20060911, end: 20060914
  2. MIRTAZAPINE [Concomitant]
  3. ZYPREXA [Concomitant]

REACTIONS (7)
  - ABORTION SPONTANEOUS [None]
  - AGITATION [None]
  - ANXIETY [None]
  - COMPLETED SUICIDE [None]
  - DRUG EXPOSURE DURING PREGNANCY [None]
  - EMOTIONAL DISORDER [None]
  - PREGNANCY [None]
